FAERS Safety Report 9246630 (Version 1)
Quarter: 2013Q2

REPORT INFORMATION
  Report Type: Spontaneous
  Country: CH (occurrence: CH)
  Receive Date: 20130422
  Receipt Date: 20130422
  Transmission Date: 20140414
  Serious: Yes (Hospitalization)
  Sender: FDA-Public Use
  Company Number: CH-TEVA-397713ISR

PATIENT
  Age: 22 Year
  Sex: Female
  Weight: 54 kg

DRUGS (7)
  1. SERALIN-MEPHA [Suspect]
     Dosage: 50 MILLIGRAM DAILY; STARTED IN OR PRIOR TO 2011
     Route: 048
  2. TROBALT [Suspect]
     Indication: EPILEPSY
     Dosage: 300 MILLIGRAM DAILY; DOSE GRADUALLY INCREASED
     Route: 048
     Dates: start: 201202
  3. TROBALT [Suspect]
     Dosage: 600 MILLIGRAM DAILY;
     Route: 048
     Dates: start: 201207, end: 20120730
  4. TROBALT [Suspect]
     Dosage: 300 MILLIGRAM DAILY;
     Route: 048
     Dates: start: 20121020, end: 20121106
  5. LYRICA [Concomitant]
     Dosage: 600 MILLIGRAM DAILY; STARTED IN OR PRIOR TO 2011
     Route: 048
  6. URBANYL [Concomitant]
     Dosage: 15 MILLIGRAM DAILY; STARTED IN OR PRIOR TO 2011
     Route: 048
  7. LAMICTAL [Concomitant]
     Indication: EPILEPSY
     Dosage: 500 MILLIGRAM DAILY; STARTED IN OR PRIOR TO 2011
     Route: 048

REACTIONS (1)
  - Hepatocellular injury [Recovered/Resolved]
